FAERS Safety Report 20379620 (Version 1)
Quarter: 2022Q1

REPORT INFORMATION
  Report Type: Report from Study
  Country: IT (occurrence: IT)
  Receive Date: 20220126
  Receipt Date: 20220126
  Transmission Date: 20220423
  Serious: Yes (Other)
  Sender: FDA-Public Use
  Company Number: None

PATIENT
  Age: 53 Year
  Sex: Female

DRUGS (3)
  1. IRINOTECAN HYDROCHLORIDE [Suspect]
     Active Substance: IRINOTECAN HYDROCHLORIDE
     Indication: Colon neoplasm
     Dosage: 1 DF, SINGLE
     Route: 042
     Dates: start: 20211109, end: 20211109
  2. FLUOROURACIL [Concomitant]
     Active Substance: FLUOROURACIL
     Indication: Colon neoplasm
     Dosage: FREQ:{TOTAL};
     Route: 042
     Dates: start: 20211109, end: 20211109
  3. FOLINIC ACID/HYDROXOCOBALAMIN [Concomitant]
     Indication: Colon neoplasm
     Dosage: UNK
     Route: 042
     Dates: start: 20211109, end: 20211109

REACTIONS (3)
  - Haematochezia [Recovering/Resolving]
  - Abdominal pain [Recovering/Resolving]
  - Diarrhoea [Recovering/Resolving]

NARRATIVE: CASE EVENT DATE: 20211118
